FAERS Safety Report 4890017-5 (Version None)
Quarter: 2006Q1

REPORT INFORMATION
  Report Type: 
  Country: None (occurrence: None)
  Receive Date: 20060124
  Receipt Date: 20060118
  Transmission Date: 20060701
  Serious: Yes (Death)
  Sender: FDA-Public Use
  Company Number: GB-ROCHE-432702

PATIENT
  Age: 61 Year
  Sex: Female

DRUGS (2)
  1. CYMEVENE [Suspect]
     Indication: BONE MARROW TRANSPLANT
     Route: 042
  2. CYMEVENE [Suspect]
     Route: 042

REACTIONS (2)
  - BONE MARROW FAILURE [None]
  - SEPSIS [None]
